FAERS Safety Report 19578845 (Version 1)
Quarter: 2021Q3

REPORT INFORMATION
  Report Type: Spontaneous
  Country: IT (occurrence: IT)
  Receive Date: 20210719
  Receipt Date: 20210719
  Transmission Date: 20211014
  Serious: Yes (Other)
  Sender: FDA-Public Use
  Company Number: IT-MYLANLABS-2021M1041803

PATIENT
  Age: 79 Year
  Sex: Male
  Weight: 80 kg

DRUGS (1)
  1. ROSUVASTATINA MYLAN 10 MG COMPRESSE RIVESTITE CON FILM. [Suspect]
     Active Substance: ROSUVASTATIN CALCIUM
     Indication: DYSLIPIDAEMIA
     Dosage: 10 MILLIGRAM/SQ. METER, QD
     Route: 048
     Dates: start: 20200628, end: 20200903

REACTIONS (3)
  - Drug abuse [Unknown]
  - Myalgia [Recovered/Resolved]
  - Intentional product misuse [Unknown]

NARRATIVE: CASE EVENT DATE: 20200710
